FAERS Safety Report 9308268 (Version 1)
Quarter: 2013Q2

REPORT INFORMATION
  Report Type: Report from Study
  Country: ES (occurrence: ES)
  Receive Date: 20130524
  Receipt Date: 20130524
  Transmission Date: 20140414
  Serious: Yes (Hospitalization)
  Sender: FDA-Public Use
  Company Number: PHHO2013ES006639

PATIENT
  Age: 22 Year
  Sex: Male
  Weight: 78 kg

DRUGS (1)
  1. ACZ885 [Suspect]
     Indication: HYPER IGD SYNDROME
     Dosage: 450 MG, UNK
     Route: 058
     Dates: start: 20110718

REACTIONS (1)
  - Abscess bacterial [Unknown]
